FAERS Safety Report 7570900-2 (Version None)
Quarter: 2011Q2

REPORT INFORMATION
  Report Type: 
  Country: None (occurrence: None)
  Receive Date: 20110624
  Receipt Date: 20110615
  Transmission Date: 20111010
  Serious: Yes (Hospitalization, Other)
  Sender: FDA-Public Use
  Company Number: CA-PFIZER INC-2011137006

PATIENT
  Age: 43 Year
  Sex: Male

DRUGS (1)
  1. VARENICLINE TARTRATE [Suspect]
     Dosage: UNK
     Dates: start: 20071101

REACTIONS (8)
  - FEELING ABNORMAL [None]
  - ABNORMAL DREAMS [None]
  - ANGER [None]
  - PHYSICAL ASSAULT [None]
  - AMNESIA [None]
  - RESTLESSNESS [None]
  - SUICIDE ATTEMPT [None]
  - DRUG INEFFECTIVE [None]
